FAERS Safety Report 4393279-6 (Version None)
Quarter: 2004Q3

REPORT INFORMATION
  Report Type: 
  Country: None (occurrence: None)
  Receive Date: 20040701
  Receipt Date: 20040614
  Transmission Date: 20050211
  Serious: Yes (Other)
  Sender: FDA-Public Use
  Company Number: FR_040604289

PATIENT
  Age: 70 Year
  Sex: Female

DRUGS (2)
  1. PERGOLIDE MESYLATE [Suspect]
     Indication: PARKINSON'S DISEASE
     Dosage: 3.5 MG/ 1 DAY
     Dates: end: 20040101
  2. LEVODOPA [Concomitant]

REACTIONS (5)
  - GENERAL PHYSICAL HEALTH DETERIORATION [None]
  - HYDRONEPHROSIS [None]
  - RENAL FAILURE [None]
  - RETROPERITONEAL FIBROSIS [None]
  - URETERIC DILATATION [None]
